FAERS Safety Report 15188074 (Version 2)
Quarter: 2019Q1

REPORT INFORMATION
  Report Type: Spontaneous
  Country: US (occurrence: US)
  Receive Date: 20180724
  Receipt Date: 20190228
  Transmission Date: 20190417
  Serious: No
  Sender: FDA-Public Use
  Company Number: US-BAUSCH-BL-2018-007377

PATIENT
  Age: 43 Year
  Sex: Female
  Weight: 45.4 kg

DRUGS (2)
  1. JUBLIA [Suspect]
     Active Substance: EFINACONAZOLE
     Indication: ONYCHOMYCOSIS
     Dosage: APPLIED ONCE DAILY TO TWO TOENAILS
     Route: 061
     Dates: start: 201708
  2. JUBLIA [Suspect]
     Active Substance: EFINACONAZOLE
     Dosage: APPLIED ONCE DAILY TO TWO TOENAILS
     Route: 061
     Dates: start: 2018

REACTIONS (3)
  - Onychomycosis [Not Recovered/Not Resolved]
  - Pain [Not Recovered/Not Resolved]
  - Condition aggravated [Not Recovered/Not Resolved]

NARRATIVE: CASE EVENT DATE: 201802
